FAERS Safety Report 8034436-7 (Version None)
Quarter: 2011Q4

REPORT INFORMATION
  Report Type: 
  Country: None (occurrence: None)
  Receive Date: 20111202
  Receipt Date: 20110727
  Transmission Date: 20120403
  Serious: Yes (Disabling)
  Sender: FDA-Public Use
  Company Number: WAES 1107USA03700

PATIENT
  Sex: Male

DRUGS (1)
  1. FOSAMAX [Suspect]
     Indication: OSTEOPOROSIS PROPHYLAXIS
     Dosage: PO
     Route: 048

REACTIONS (1)
  - OSTEONECROSIS OF JAW [None]
